FAERS Safety Report 6574238-1 (Version None)
Quarter: 2010Q1

REPORT INFORMATION
  Report Type: 
  Country: None (occurrence: None)
  Receive Date: 20100208
  Receipt Date: 20100128
  Transmission Date: 20100710
  Serious: Yes (Other)
  Sender: FDA-Public Use
  Company Number: US-WYE-H13277010

PATIENT
  Sex: Male
  Weight: 50.39 kg

DRUGS (8)
  1. RAPAMUNE [Suspect]
     Indication: LUNG TRANSPLANT
     Route: 048
  2. PREDNISONE TAB [Concomitant]
  3. ABILIFY [Concomitant]
  4. COZAAR [Concomitant]
     Indication: HYPERTENSION
     Dosage: ^DAILY^ (DOSE UNSPECIFIED)
  5. BACTRIM [Concomitant]
     Dosage: TWICE WEEKLY (DOSE UNSPECIFIED)
  6. ZOLOFT [Concomitant]
  7. PROGRAF [Concomitant]
  8. FOSAMAX [Concomitant]

REACTIONS (3)
  - CONDITION AGGRAVATED [None]
  - SKIN CANCER [None]
  - WEIGHT DECREASED [None]
